FAERS Safety Report 5718063-X (Version None)
Quarter: 2008Q2

REPORT INFORMATION
  Report Type: 
  Country: None (occurrence: None)
  Receive Date: 20080425
  Receipt Date: 20080421
  Transmission Date: 20081010
  Serious: Yes (Life-Threatening, Other)
  Sender: FDA-Public Use
  Company Number: PHHY2008JP02276

PATIENT
  Age: 11 Year
  Sex: Male

DRUGS (8)
  1. SANDIMMUNE [Suspect]
     Indication: CORD BLOOD TRANSPLANT THERAPY
     Dosage: 150 MG/ DAY
     Route: 042
     Dates: start: 20070408, end: 20070420
  2. FLUDARABINE PHOSPHATE [Concomitant]
     Indication: CORD BLOOD TRANSPLANT THERAPY
     Dosage: 30 MG/M2
     Route: 042
     Dates: start: 20070401
  3. L-PAM [Concomitant]
     Indication: CORD BLOOD TRANSPLANT THERAPY
     Dosage: 70 MG/M2
     Route: 042
  4. RADIOTHERAPY [Concomitant]
     Dosage: 6 GY
  5. NEORAL [Suspect]
     Indication: CORD BLOOD TRANSPLANT THERAPY
     Dosage: 90 MG/ DAY
     Route: 048
     Dates: start: 20060518, end: 20060830
  6. NEORAL [Suspect]
     Dosage: 70 MG/ DAY
     Route: 048
     Dates: start: 20060831
  7. NEORAL [Suspect]
     Dosage: 70 MG/ DAY
     Route: 048
     Dates: start: 20070101, end: 20070920
  8. PREDONINE [Suspect]
     Indication: EPSTEIN-BARR VIRUS INFECTION
     Route: 048
     Dates: start: 20060701

REACTIONS (4)
  - ACUTE GRAFT VERSUS HOST DISEASE [None]
  - CYTOMEGALOVIRUS ANTIGEN POSITIVE [None]
  - PULMONARY OEDEMA [None]
  - VENOOCCLUSIVE DISEASE [None]
